FAERS Safety Report 7375697-7 (Version None)
Quarter: 2011Q1

REPORT INFORMATION
  Report Type: 
  Country: None (occurrence: None)
  Receive Date: 20110317
  Receipt Date: 20110304
  Transmission Date: 20110831
  Serious: Yes (Hospitalization)
  Sender: FDA-Public Use
  Company Number: 1000019019

PATIENT
  Age: 29 Year
  Sex: Female

DRUGS (10)
  1. LORAZEPAM [Concomitant]
  2. TOPAMAX [Concomitant]
  3. SOLIAN (AMISULPRIDE) (TABLETS) [Suspect]
     Dosage: 1200 MG (1200 MG, 1 IN 1 D), ORAL
     Route: 048
     Dates: start: 20101103, end: 20101124
  4. HALDOL [Suspect]
     Dosage: 10 MG (10 MG, 1 IN 1 D), ORAL
     Route: 048
     Dates: start: 20101105, end: 20101119
  5. ESCITALOPRAM OXALATE [Suspect]
     Dosage: 30, 15 MG (30 MG, 1 IN 1 D), ORAL
     Route: 048
     Dates: start: 20101122, end: 20101206
  6. ESCITALOPRAM OXALATE [Suspect]
     Dosage: 30, 15 MG (30 MG, 1 IN 1 D), ORAL
     Route: 048
     Dates: start: 20101103, end: 20101121
  7. ESCITALOPRAM [Suspect]
     Dosage: 20 MG (20 MG, 1 IN 1 D), ORAL
     Route: 048
     Dates: start: 20101207, end: 20110127
  8. SEROQUEL [Suspect]
     Dosage: 900, 800, 1000 MG (900 MG, 1 IN 1 D). ORAL
     Route: 048
     Dates: start: 20101214, end: 20110127
  9. SEROQUEL [Suspect]
     Dosage: 900, 800, 1000 MG (900 MG, 1 IN 1 D). ORAL
     Route: 048
     Dates: start: 20101103, end: 20101105
  10. KALIUM (POTASSIUM) [Concomitant]

REACTIONS (3)
  - LEUKOPENIA [None]
  - OVERDOSE [None]
  - GRAND MAL CONVULSION [None]
